FAERS Safety Report 9299047 (Version 1)
Quarter: 2013Q2

REPORT INFORMATION
  Report Type: Spontaneous
  Country: US (occurrence: US)
  Receive Date: 20130520
  Receipt Date: 20130520
  Transmission Date: 20140414
  Serious: No
  Sender: FDA-Public Use
  Company Number: US-BAYER-2013-062568

PATIENT
  Age: 82 Year
  Sex: Male

DRUGS (3)
  1. ALEVE CAPLET [Suspect]
     Dosage: 1 DF, OTHER FREQUENCY
     Route: 048
     Dates: start: 2012
  2. NEXIUM [Concomitant]
  3. IRON [FERROUS SULFATE] [Concomitant]

REACTIONS (1)
  - Incorrect drug administration duration [None]
